FAERS Safety Report 10045332 (Version 1)
Quarter: 2014Q1

REPORT INFORMATION
  Report Type: Spontaneous
  Country: TR (occurrence: TR)
  Receive Date: 20140328
  Receipt Date: 20140328
  Transmission Date: 20141002
  Serious: Yes (Other)
  Sender: FDA-Public Use
  Company Number: TR-WATSON-2014-05833

PATIENT
  Age: 2 Year
  Sex: Female

DRUGS (1)
  1. CARBOPLATIN (UNKNOWN) [Suspect]
     Indication: RETINOBLASTOMA
     Dosage: UNK

REACTIONS (3)
  - Conjunctival oedema [Recovered/Resolved]
  - Eyelid oedema [Recovered/Resolved]
  - Eyelid pain [Recovered/Resolved]
